FAERS Safety Report 14632662 (Version 10)
Quarter: 2018Q3

REPORT INFORMATION
  Report Type: Spontaneous
  Country: US (occurrence: US)
  Receive Date: 20180313
  Receipt Date: 20180927
  Transmission Date: 20181010
  Serious: Yes (Other)
  Sender: FDA-Public Use
  Company Number: US-BAYER-2018-043960

PATIENT
  Age: 61 Year
  Sex: Female

DRUGS (10)
  1. POTASSIUM [Concomitant]
     Active Substance: POTASSIUM
  2. CLARITYN [CROMOGLICATE SODIUM] [Concomitant]
  3. AMBRISENTAN [Suspect]
     Active Substance: AMBRISENTAN
     Indication: PRODUCT USED FOR UNKNOWN INDICATION
     Dosage: 5 MG, QD
     Route: 065
     Dates: start: 20171109
  4. LORATADINE. [Suspect]
     Active Substance: LORATADINE
     Indication: PRODUCT USED FOR UNKNOWN INDICATION
     Dosage: UNK
  5. ADEMPAS [Suspect]
     Active Substance: RIOCIGUAT
     Indication: PRODUCT USED FOR UNKNOWN INDICATION
     Dosage: 0.5 MG, UNK
     Route: 065
  6. LASIX [Concomitant]
     Active Substance: FUROSEMIDE
  7. MAGNESIUM OXIDE. [Concomitant]
     Active Substance: MAGNESIUM OXIDE
  8. TAMIFLU [Suspect]
     Active Substance: OSELTAMIVIR PHOSPHATE
     Indication: INFLUENZA
     Dosage: UNK
     Route: 065
  9. MIDODRINE [Concomitant]
     Active Substance: MIDODRINE
  10. AMBRISENTAN [Suspect]
     Active Substance: AMBRISENTAN
     Indication: PRODUCT USED FOR UNKNOWN INDICATION
     Dosage: 5 MG, QD
     Route: 065
     Dates: start: 20171109

REACTIONS (56)
  - Dysphonia [Not Recovered/Not Resolved]
  - Dizziness [Recovered/Resolved]
  - Joint swelling [Recovered/Resolved]
  - Otorrhoea [Recovering/Resolving]
  - Otorrhoea [Not Recovered/Not Resolved]
  - Fatigue [None]
  - Rash pruritic [Unknown]
  - Joint swelling [None]
  - Sleep disorder due to a general medical condition [Not Recovered/Not Resolved]
  - Increased viscosity of bronchial secretion [Not Recovered/Not Resolved]
  - Rash [Recovering/Resolving]
  - Rash [None]
  - Malaise [Not Recovered/Not Resolved]
  - Influenza [Recovered/Resolved]
  - Peripheral swelling [Recovered/Resolved]
  - Eustachian tube disorder [Not Recovered/Not Resolved]
  - Hypotension [Not Recovered/Not Resolved]
  - Urticaria [None]
  - Joint swelling [Unknown]
  - Rash [Unknown]
  - Myalgia [None]
  - Ear discomfort [Not Recovered/Not Resolved]
  - Inappropriate schedule of drug administration [None]
  - Dyspnoea [None]
  - Multiple allergies [Unknown]
  - Arthralgia [None]
  - Hypotension [Unknown]
  - Ear disorder [Not Recovered/Not Resolved]
  - Oedema peripheral [Not Recovered/Not Resolved]
  - Pain in extremity [Not Recovered/Not Resolved]
  - Fatigue [Recovering/Resolving]
  - Lip swelling [Recovering/Resolving]
  - Vertigo [Not Recovered/Not Resolved]
  - Wheezing [None]
  - Rash pruritic [Recovered/Resolved]
  - Blood pressure fluctuation [Not Recovered/Not Resolved]
  - Productive cough [Unknown]
  - Fluid retention [Not Recovered/Not Resolved]
  - Swelling face [Not Recovered/Not Resolved]
  - Peripheral swelling [Unknown]
  - Tonsillar disorder [Not Recovered/Not Resolved]
  - Chest discomfort [Not Recovered/Not Resolved]
  - Seasonal allergy [Not Recovered/Not Resolved]
  - Generalised oedema [Not Recovered/Not Resolved]
  - Nasal oedema [Not Recovered/Not Resolved]
  - Arthropod infestation [Not Recovered/Not Resolved]
  - Nasal congestion [Unknown]
  - Cardiomegaly [Not Recovered/Not Resolved]
  - Cough [Not Recovered/Not Resolved]
  - Weight increased [Not Recovered/Not Resolved]
  - Lip swelling [Recovered/Resolved]
  - Unevaluable event [None]
  - Herpes zoster [Not Recovered/Not Resolved]
  - Nasal congestion [None]
  - Cough [None]
  - Feeling abnormal [None]

NARRATIVE: CASE EVENT DATE: 201712
